FAERS Safety Report 5259294-5 (Version None)
Quarter: 2007Q1

REPORT INFORMATION
  Report Type: 
  Country: None (occurrence: None)
  Receive Date: 20070308
  Receipt Date: 20070222
  Transmission Date: 20070707
  Serious: Yes (Hospitalization)
  Sender: FDA-Public Use
  Company Number: DE-SHR-DE-2007-006332

PATIENT
  Age: 51 Year
  Sex: Male
  Weight: 64 kg

DRUGS (6)
  1. FLUDARABINE PHOSPHATE [Suspect]
     Dosage: UNK, CYCLES
     Dates: start: 20061024
  2. FLUDARABINE PHOSPHATE [Suspect]
     Dosage: UNK, CYCLES
     Dates: start: 20061123
  3. CYCLOPHOSPHAMIDE [Suspect]
     Dosage: UNK, CYCLES
     Dates: start: 20061024
  4. CYCLOPHOSPHAMIDE [Suspect]
     Dosage: UNK, CYCLES
     Dates: start: 20061123
  5. COTRIM [Concomitant]
     Dosage: 960 MG, 3X/WEEK
  6. CLEXANE                                 /GFR/ [Concomitant]
     Dosage: .6 ML, 2X/DAY

REACTIONS (4)
  - IMMUNE RECONSTITUTION SYNDROME [None]
  - NEUTROPENIA [None]
  - PYREXIA [None]
  - RASH MACULO-PAPULAR [None]
